FAERS Safety Report 5217163-0 (Version None)
Quarter: 2007Q1

REPORT INFORMATION
  Report Type: 
  Country: None (occurrence: None)
  Receive Date: 20070123
  Receipt Date: 20070123
  Transmission Date: 20070707
  Serious: Yes (Other)
  Sender: FDA-Public Use
  Company Number: None

PATIENT
  Sex: Female
  Weight: 59.8748 kg

DRUGS (3)
  1. METHYLTEST/ESTROGEN [Suspect]
     Indication: HORMONE REPLACEMENT THERAPY
     Dosage: ONE TABLET  ONE A DAY  MOUTH
     Route: 048
     Dates: start: 20061225, end: 20070103
  2. NORETHINDRONE [Concomitant]
  3. ESTRATEST H.S. [Suspect]

REACTIONS (9)
  - EARLY MORNING AWAKENING [None]
  - HOT FLUSH [None]
  - IRRITABILITY [None]
  - MENOPAUSAL SYMPTOMS [None]
  - MIDDLE INSOMNIA [None]
  - MOOD ALTERED [None]
  - NO THERAPEUTIC RESPONSE [None]
  - PHARMACEUTICAL PRODUCT COMPLAINT [None]
  - THERAPEUTIC RESPONSE UNEXPECTED WITH DRUG SUBSTITUTION [None]
